FAERS Safety Report 19454699 (Version 3)
Quarter: 2021Q3

REPORT INFORMATION
  Report Type: Report from Study
  Country: US (occurrence: US)
  Receive Date: 20210623
  Receipt Date: 20210825
  Transmission Date: 20211014
  Serious: No
  Sender: FDA-Public Use
  Company Number: NVSC2021US131041

PATIENT
  Sex: Male

DRUGS (1)
  1. ENTRESTO [Suspect]
     Active Substance: SACUBITRIL\VALSARTAN
     Indication: CARDIAC FAILURE
     Dosage: UNK
     Route: 065

REACTIONS (6)
  - Dizziness [Recovering/Resolving]
  - Temperature intolerance [Unknown]
  - Cardiac disorder [Unknown]
  - Weight decreased [Unknown]
  - Muscular weakness [Unknown]
  - Fatigue [Unknown]
